FAERS Safety Report 5600469-0 (Version None)
Quarter: 2008Q1

REPORT INFORMATION
  Report Type: 
  Country: None (occurrence: None)
  Receive Date: 20080118
  Receipt Date: 20080110
  Transmission Date: 20080703
  Serious: Yes (Death, Other)
  Sender: FDA-Public Use
  Company Number: 2008SP000873

PATIENT
  Sex: Female

DRUGS (1)
  1. INTERFERON ALFA-2B RECOMBINANT (S-P) [Suspect]
     Indication: HEPATITIS C

REACTIONS (1)
  - DEATH [None]
